FAERS Safety Report 8217468-5 (Version None)
Quarter: 2012Q1

REPORT INFORMATION
  Report Type: 
  Country: None (occurrence: None)
  Receive Date: 20120301
  Receipt Date: 20111017
  Transmission Date: 20120608
  Serious: Yes (Hospitalization)
  Sender: FDA-Public Use
  Company Number: 299013USA

PATIENT
  Age: 81 Year
  Sex: Female

DRUGS (7)
  1. LEVOTHYROXINE SODIUM [Concomitant]
  2. GLIPIZIDE [Concomitant]
  3. ATENOLOL [Concomitant]
  4. VALSARTAN [Concomitant]
  5. NIFEDIPINE [Concomitant]
  6. SIMVASTATIN [Concomitant]
  7. METFORMIN HCL [Suspect]
     Dosage: 500 MG

REACTIONS (7)
  - DIZZINESS [None]
  - HYPERHIDROSIS [None]
  - MALAISE [None]
  - CONFUSIONAL STATE [None]
  - HYPOGLYCAEMIA [None]
  - TREMOR [None]
  - BLOOD GLUCOSE DECREASED [None]
